FAERS Safety Report 21353009 (Version 1)
Quarter: 2022Q3

REPORT INFORMATION
  Report Type: Other
  Country: NL (occurrence: None)
  Receive Date: 20220920
  Receipt Date: 20220920
  Transmission Date: 20221026
  Serious: Yes (Other)
  Sender: FDA-Public Use
  Company Number: NL-ROCHE-3178162

PATIENT
  Age: 43 Year
  Sex: Female

DRUGS (1)
  1. RISDIPLAM [Suspect]
     Active Substance: RISDIPLAM
     Indication: Spinal muscular atrophy
     Route: 065

REACTIONS (16)
  - Weight decreased [Not Recovered/Not Resolved]
  - Hypophagia [Not Recovered/Not Resolved]
  - Normocytic anaemia [Not Recovered/Not Resolved]
  - Hypokalaemia [Not Recovered/Not Resolved]
  - Thrombocytosis [Not Recovered/Not Resolved]
  - Atelectasis [Not Recovered/Not Resolved]
  - Pleural effusion [Not Recovered/Not Resolved]
  - Prothrombin time prolonged [Not Recovered/Not Resolved]
  - C-reactive protein increased [Recovered/Resolved]
  - Peripheral swelling [Not Recovered/Not Resolved]
  - Blood albumin decreased [Not Recovered/Not Resolved]
  - Pyelonephritis [Recovered/Resolved]
  - Chest discomfort [Recovered/Resolved]
  - Pyrexia [Recovered/Resolved]
  - Urinary tract infection [Not Recovered/Not Resolved]
  - Bladder pain [Not Recovered/Not Resolved]

NARRATIVE: CASE EVENT DATE: 20220101
